FAERS Safety Report 19131349 (Version 1)
Quarter: 2021Q2

REPORT INFORMATION
  Report Type: Spontaneous
  Country: US (occurrence: US)
  Receive Date: 20210414
  Receipt Date: 20210414
  Transmission Date: 20210717
  Serious: No
  Sender: FDA-Public Use
  Company Number: US-BAUSCH-BL-2021-008392

PATIENT
  Age: 59 Year
  Sex: Female
  Weight: 72.64 kg

DRUGS (2)
  1. TRULANCE [Suspect]
     Active Substance: PLECANATIDE
     Dosage: ABOUT TWO MONTHS AGO PRIOR TO THE DATE OF THIS REPORT
     Route: 048
     Dates: start: 202101
  2. TRULANCE [Suspect]
     Active Substance: PLECANATIDE
     Indication: CONSTIPATION
     Dosage: TWO TO THREE YEARS AGO PRIOR TO THE DATE OF THIS REPORT
     Route: 048
     Dates: end: 202101

REACTIONS (3)
  - Abdominal discomfort [Unknown]
  - Product quality issue [Unknown]
  - Drug ineffective [Unknown]

NARRATIVE: CASE EVENT DATE: 202101
